FAERS Safety Report 24785302 (Version 1)
Quarter: 2024Q4

REPORT INFORMATION
  Report Type: Spontaneous
  Country: JP (occurrence: JP)
  Receive Date: 20241228
  Receipt Date: 20241228
  Transmission Date: 20250115
  Serious: Yes (Other)
  Sender: ACCORD
  Company Number: JP-MLMSERVICE-20241217-PI295286-00218-2

PATIENT
  Age: 67 Year
  Sex: Female

DRUGS (5)
  1. METHOTREXATE [Suspect]
     Active Substance: METHOTREXATE
     Indication: Lymphoproliferative disorder
     Dosage: HIGH DOSE AT 400 UG/0.1 ML WAS ADMINISTERED TWICE A WEEK FOR 11 COURSES
  2. METHOTREXATE [Suspect]
     Active Substance: METHOTREXATE
     Indication: Ocular lymphoma
     Dosage: HIGH DOSE AT 400 UG/0.1 ML WAS ADMINISTERED TWICE A WEEK FOR 11 COURSES, INJECTION
  3. METHOTREXATE [Suspect]
     Active Substance: METHOTREXATE
     Indication: Central nervous system lymphoma
     Dosage: HIGH DOSE AT 400 UG/0.1 ML WAS ADMINISTERED TWICE A WEEK FOR 11 COURSES, INJECTION
  4. METHOTREXATE [Suspect]
     Active Substance: METHOTREXATE
     Indication: Central nervous system lymphoma
     Dosage: HIGH DOSE AT 400 UG/0.1 ML WAS ADMINISTERED TWICE A WEEK FOR 11 COURSES, INJECTION
  5. METHOTREXATE [Suspect]
     Active Substance: METHOTREXATE
     Indication: Diffuse large B-cell lymphoma
     Dosage: HIGH DOSE AT 400 UG/0.1 ML WAS ADMINISTERED TWICE A WEEK FOR 11 COURSES, INJECTION

REACTIONS (1)
  - Corneal epithelium defect [Recovered/Resolved]
